FAERS Safety Report 8631034 (Version 3)
Quarter: 2012Q4

REPORT INFORMATION
  Report Type: 
  Country: JP (occurrence: JP)
  Receive Date: 20120622
  Receipt Date: 20121016
  Transmission Date: 20130627
  Serious: Yes (Death, Hospitalization, Other)
  Sender: FDA-Public Use
  Company Number: JP-ELI_LILLY_AND_COMPANY-JP201106005260

PATIENT
  Age: 70 Year
  Sex: Male

DRUGS (14)
  1. GEMZAR [Suspect]
     Indication: TRANSITIONAL CELL CARCINOMA
     Dosage: UNK
     Route: 042
     Dates: start: 20110613
  2. PARIET [Concomitant]
     Dosage: UNK, bid
     Route: 048
  3. GASCON [Concomitant]
     Dosage: UNK, tid
     Route: 048
  4. BENZALIN [Concomitant]
     Dosage: UNK, qd
     Route: 048
  5. PROGRAF [Concomitant]
     Dosage: UNK, bid
     Route: 048
  6. CRAVIT [Concomitant]
     Dosage: UNK, qd
     Route: 048
  7. MOHRUS [Concomitant]
     Dosage: UNK, prn
     Route: 062
  8. LOXONIN [Concomitant]
     Dosage: UNK, tid
     Route: 048
  9. EMEND [Concomitant]
     Dosage: UNK, qd
     Route: 048
     Dates: start: 20110613, end: 20110613
  10. EMEND [Concomitant]
     Dosage: UNK, qd
     Route: 048
     Dates: start: 20110614
  11. MEROPEN [Concomitant]
     Dosage: UNK
     Route: 042
     Dates: start: 20110609
  12. ALOXI [Concomitant]
     Dosage: UNK
     Route: 042
  13. DECADRON                                /CAN/ [Concomitant]
     Dosage: UNK
     Route: 042
  14. SOLU-MEDROL [Concomitant]
     Dosage: UNK
     Route: 042

REACTIONS (6)
  - Death [Fatal]
  - Condition aggravated [Unknown]
  - Melaena [Unknown]
  - Allergic respiratory symptom [Unknown]
  - Interstitial lung disease [Unknown]
  - Computerised tomogram abnormal [Unknown]
